FAERS Safety Report 7333502-9 (Version None)
Quarter: 2011Q1

REPORT INFORMATION
  Report Type: 
  Country: None (occurrence: None)
  Receive Date: 20110304
  Receipt Date: 20110223
  Transmission Date: 20110831
  Serious: Yes (Hospitalization)
  Sender: FDA-Public Use
  Company Number: US-WATSON-2011-02410

PATIENT
  Age: 15 Year
  Sex: Female

DRUGS (3)
  1. HYDROXYZINE HCL [Suspect]
     Dosage: 25 MG, PRN, Q8H
     Route: 048
  2. DIPHENHYDRAMINE HCL [Suspect]
     Indication: DRUG ABUSE
     Dosage: 400 MG, DAILY
     Route: 048
  3. HYDROXYZINE HCL [Suspect]
     Indication: ANXIETY
     Dosage: 25 MG, PRN, Q8H
     Route: 048

REACTIONS (4)
  - DRUG ABUSE [None]
  - WITHDRAWAL SYNDROME [None]
  - DEPENDENCE [None]
  - DRUG TOLERANCE [None]
